FAERS Safety Report 12616603 (Version 2)
Quarter: 2016Q3

REPORT INFORMATION
  Report Type: Spontaneous
  Country: DK (occurrence: DK)
  Receive Date: 20160802
  Receipt Date: 20160901
  Transmission Date: 20161109
  Serious: Yes (Other)
  Sender: FDA-Public Use
  Company Number: DK-ABBVIE-16K-044-1690487-00

PATIENT
  Age: 50 Year
  Sex: Female

DRUGS (6)
  1. NORVIR [Suspect]
     Active Substance: RITONAVIR
     Indication: ACQUIRED IMMUNODEFICIENCY SYNDROME
     Route: 048
  2. RETROVIR [Suspect]
     Active Substance: ZIDOVUDINE
     Indication: ACQUIRED IMMUNODEFICIENCY SYNDROME
     Route: 065
  3. COMBIVIR [Suspect]
     Active Substance: LAMIVUDINE\ZIDOVUDINE
     Indication: ACQUIRED IMMUNODEFICIENCY SYNDROME
     Route: 065
  4. DOLUTEGRAVIR [Suspect]
     Active Substance: DOLUTEGRAVIR
     Indication: ACQUIRED IMMUNODEFICIENCY SYNDROME
     Route: 065
  5. DARUNAVIR [Suspect]
     Active Substance: DARUNAVIR
     Indication: ACQUIRED IMMUNODEFICIENCY SYNDROME
     Route: 065
  6. MARAVIROC [Suspect]
     Active Substance: MARAVIROC
     Indication: ACQUIRED IMMUNODEFICIENCY SYNDROME
     Route: 065

REACTIONS (4)
  - Pathogen resistance [Unknown]
  - Treatment noncompliance [Unknown]
  - Weight decreased [Unknown]
  - Anaemia [Unknown]

NARRATIVE: CASE EVENT DATE: 2015
